FAERS Safety Report 9543981 (Version 1)
Quarter: 2013Q3

REPORT INFORMATION
  Report Type: Spontaneous
  Country: GB (occurrence: GB)
  Receive Date: 20130923
  Receipt Date: 20130923
  Transmission Date: 20140515
  Serious: Yes (Other)
  Sender: FDA-Public Use
  Company Number: GB-VERTEX PHARMACEUTICALS INC-2013-009827

PATIENT
  Age: 57 Year
  Sex: Male
  Weight: 104.7 kg

DRUGS (5)
  1. INCIVO [Suspect]
     Indication: HEPATITIS C RNA
     Dosage: 1125 MG, BID
     Route: 048
     Dates: start: 20130827
  2. AVEENO (ALLANTOIN/GLYCERIN/OAT GRAIN) [Suspect]
     Indication: PRURITUS
     Dosage: UNK, PRN
     Route: 061
     Dates: start: 20130831
  3. AVEENO (ALLANTOIN/GLYCERIN/OAT GRAIN) [Suspect]
     Indication: DRY SKIN
  4. COPEGUS [Suspect]
     Indication: HEPATITIS C RNA
     Dosage: DOSAGE FORM: TABLETS
     Route: 048
     Dates: start: 20130827
  5. PEGASYS [Suspect]
     Indication: HEPATITIS C RNA
     Dosage: DOSAGE FORM: INJECTION
     Route: 058
     Dates: start: 20130827

REACTIONS (4)
  - Rash erythematous [Not Recovered/Not Resolved]
  - Rash generalised [Not Recovered/Not Resolved]
  - Rash pruritic [Not Recovered/Not Resolved]
  - Rash papular [Not Recovered/Not Resolved]
